FAERS Safety Report 7149486-2 (Version None)
Quarter: 2010Q4

REPORT INFORMATION
  Report Type: 
  Country: None (occurrence: None)
  Receive Date: 20101209
  Receipt Date: 20101124
  Transmission Date: 20110411
  Serious: Yes (Hospitalization, Other)
  Sender: FDA-Public Use
  Company Number: US-SANOFI-AVENTIS-A03200701989

PATIENT
  Age: 62 Year
  Sex: Male
  Weight: 113 kg

DRUGS (36)
  1. PLAVIX [Suspect]
     Indication: CARDIOVASCULAR DISORDER
     Dosage: UNIT DOSE: 75 MG
     Route: 048
     Dates: start: 19991001
  2. PLAVIX [Suspect]
     Dosage: UNIT DOSE: 75 MG
     Route: 048
     Dates: start: 19991001
  3. PLAVIX [Suspect]
     Route: 048
     Dates: start: 20010821, end: 20040129
  4. PLAVIX [Suspect]
     Route: 048
     Dates: start: 20010821, end: 20040129
  5. CATAPRES /USA/ [Concomitant]
     Route: 048
  6. DEMADEX [Concomitant]
     Route: 048
  7. ASPIRIN [Concomitant]
     Route: 048
  8. ASPIRIN [Concomitant]
     Route: 048
  9. VITAMIN E [Concomitant]
     Dosage: DOSE:400 UNIT(S)
     Route: 048
  10. HUMULIN 70/30 [Concomitant]
     Dosage: 35 UNITS IN THE MORNING AND 35 UNITS IN THE EVENING
  11. ARANESP [Concomitant]
     Dosage: DOSE:100 MICROGRAM(S)/MILLILITRE
     Route: 058
  12. NEURONTIN [Concomitant]
     Route: 048
  13. ANDROGEL [Concomitant]
  14. LIPITOR [Concomitant]
     Route: 048
  15. LIPITOR [Concomitant]
     Route: 048
  16. MULTI-VITAMINS [Concomitant]
     Route: 048
  17. COREG [Concomitant]
     Route: 048
  18. AVAPRO [Concomitant]
     Route: 048
  19. ALLOPURINOL [Concomitant]
     Route: 048
  20. DOXAZOSIN [Concomitant]
     Route: 048
  21. PROZAC [Concomitant]
     Route: 048
  22. NIFEREX FORTE [Concomitant]
     Route: 048
  23. PHOSLO [Concomitant]
     Route: 048
  24. HUMALOG [Concomitant]
  25. AMLODIPINE [Concomitant]
     Route: 065
  26. AMLODIPINE [Concomitant]
  27. ALTACE [Concomitant]
  28. VALSARTAN [Concomitant]
     Route: 065
  29. TOPROL-XL [Concomitant]
  30. IMDUR [Concomitant]
  31. IMDUR [Concomitant]
  32. COZAAR [Concomitant]
     Route: 048
  33. CLONIDINE [Concomitant]
     Route: 048
  34. PRILOSEC [Concomitant]
  35. TRENTAL [Concomitant]
  36. FOLIC ACID [Concomitant]

REACTIONS (9)
  - ABDOMINAL PAIN [None]
  - ANAEMIA [None]
  - DIABETIC RETINOPATHY [None]
  - DIARRHOEA [None]
  - DUODENAL ULCER HAEMORRHAGE [None]
  - HAEMATEMESIS [None]
  - HAEMATOCHEZIA [None]
  - NAUSEA [None]
  - OCCULT BLOOD POSITIVE [None]
